FAERS Safety Report 25256490 (Version 2)
Quarter: 2025Q2

REPORT INFORMATION
  Report Type: Report from Study
  Country: US (occurrence: US)
  Receive Date: 20250430
  Receipt Date: 20250520
  Transmission Date: 20250716
  Serious: Yes (Other)
  Sender: OTSUKA
  Company Number: US-OTSUKA-2024_027498

PATIENT
  Age: 33 Year
  Sex: Male
  Weight: 141 kg

DRUGS (18)
  1. TOLVAPTAN [Suspect]
     Active Substance: TOLVAPTAN
     Indication: Congenital cystic kidney disease
     Route: 065
     Dates: start: 20240918
  2. TOLVAPTAN [Suspect]
     Active Substance: TOLVAPTAN
     Dosage: 45 MG, QD (IN THE MORNING)
     Route: 065
     Dates: start: 20241007
  3. TOLVAPTAN [Suspect]
     Active Substance: TOLVAPTAN
     Dosage: 15 MG, QD (IN THE EVENING)
     Route: 065
     Dates: start: 20241007
  4. TOLVAPTAN [Suspect]
     Active Substance: TOLVAPTAN
     Route: 065
  5. COREG [Concomitant]
     Active Substance: CARVEDILOL
     Indication: Hypertension
     Dosage: 12.5 MG, BID (1 TABLET IN THE MORNING AND 1 TABLET IN THE EVENING)
     Route: 065
  6. COREG [Concomitant]
     Active Substance: CARVEDILOL
     Dosage: 25 MG, BID (25 MG 1 TABLET IN THE MORNING AND 1 TABLET IN THE EVENING)
     Route: 048
     Dates: start: 20250417
  7. VITAMIN D3 [Concomitant]
     Active Substance: CHOLECALCIFEROL
     Indication: Vitamin D deficiency
     Dosage: 1 DF, DAILY (1000 UNITS TOTAL, EACH DAY)
     Route: 048
     Dates: start: 20240805
  8. LEXAPRO [Concomitant]
     Active Substance: ESCITALOPRAM OXALATE
     Indication: Product used for unknown indication
     Dosage: 1 DF, DAILY (10 MG TABLET EACH DAY)
     Route: 048
     Dates: start: 20240412
  9. ESOMEPRAZOLE MAGNESIUM [Concomitant]
     Active Substance: ESOMEPRAZOLE MAGNESIUM
     Indication: Product used for unknown indication
     Dosage: 1 DF, DAILY (1 TABLET EACH DAY)
     Route: 048
     Dates: start: 20240412
  10. TRICOR [Concomitant]
     Active Substance: FENOFIBRATE
     Indication: Product used for unknown indication
     Dosage: 1 DF, DAILY (1 TABLET EACH DAY)
     Route: 048
     Dates: start: 20240415, end: 20250415
  11. IRON [Concomitant]
     Active Substance: IRON
     Indication: Nephrogenic anaemia
     Dosage: 1 DF, QOD (65 MG TOTAL EVERY OTHER DAY)
     Route: 048
     Dates: start: 20240805
  12. VASCEPA [Concomitant]
     Active Substance: ICOSAPENT ETHYL
     Indication: Product used for unknown indication
     Dosage: 2 G, BID  (2 G IN THE MORNING AND 2 G IN THE EVENING
     Route: 048
     Dates: start: 20250422, end: 20250501
  13. COZAAR [Concomitant]
     Active Substance: LOSARTAN POTASSIUM
     Indication: Hypertension
     Dosage: 1 DF, DAILY (100 MG TOTAL EACH DAY)
     Route: 048
     Dates: start: 20250417
  14. COZAAR [Concomitant]
     Active Substance: LOSARTAN POTASSIUM
     Dosage: 2 DF, QD (50 MG 1 TABLET IN THE MORNING AND 1 TABLET IN THE EVENING)
     Route: 065
  15. ZOFRAN [Concomitant]
     Active Substance: ONDANSETRON HYDROCHLORIDE
     Indication: Nausea
     Route: 048
     Dates: start: 20221129
  16. ZOFRAN [Concomitant]
     Active Substance: ONDANSETRON HYDROCHLORIDE
     Indication: Vomiting
  17. CRESTOR [Concomitant]
     Active Substance: ROSUVASTATIN CALCIUM
     Indication: Product used for unknown indication
     Dosage: 1 DF, DAILY (10 MG 1 TABLET EACH DAY)
     Route: 048
     Dates: start: 20241025
  18. ALDACTONE [Concomitant]
     Active Substance: SPIRONOLACTONE
     Indication: Product used for unknown indication
     Route: 065

REACTIONS (10)
  - Type 2 diabetes mellitus [Not Recovered/Not Resolved]
  - Influenza [Recovered/Resolved]
  - Illness [Unknown]
  - Blood alkaline phosphatase decreased [Unknown]
  - Nocturia [Not Recovered/Not Resolved]
  - Polydipsia [Not Recovered/Not Resolved]
  - Alanine aminotransferase increased [Unknown]
  - Thirst [Not Recovered/Not Resolved]
  - Polyuria [Unknown]
  - Dehydration [Unknown]

NARRATIVE: CASE EVENT DATE: 20250416
